FAERS Safety Report 20057500 (Version 1)
Quarter: 2021Q4

REPORT INFORMATION
  Report Type: Report from Study
  Country: MX (occurrence: MX)
  Receive Date: 20211111
  Receipt Date: 20211111
  Transmission Date: 20220303
  Serious: Yes (Death, Hospitalization, Other)
  Sender: FDA-Public Use
  Company Number: MX-TAKEDA-MX202006508

PATIENT
  Age: 12 Year
  Sex: Male
  Weight: 14 kg

DRUGS (10)
  1. IDURSULFASE [Suspect]
     Active Substance: IDURSULFASE
     Indication: Mucopolysaccharidosis II
     Dosage: 1 DOSAGE FORM, 1/WEEK
     Route: 042
     Dates: start: 20130702
  2. IDURSULFASE [Suspect]
     Active Substance: IDURSULFASE
     Dosage: UNK
     Route: 065
     Dates: start: 20200204
  3. IDURSULFASE [Suspect]
     Active Substance: IDURSULFASE
     Dosage: 1 DOSAGE FORM, 1/WEEK
     Route: 042
     Dates: start: 20200330
  4. IDURSULFASE [Suspect]
     Active Substance: IDURSULFASE
     Dosage: 6 MILLIGRAM, 1/WEEK
     Route: 042
     Dates: start: 20130702
  5. AMOXICILLIN [Concomitant]
     Active Substance: AMOXICILLIN
     Indication: Product used for unknown indication
     Dosage: 500 MILLIGRAM, 3X/DAY:TID
     Route: 048
     Dates: start: 20200721
  6. ACETAMINOPHEN [Concomitant]
     Active Substance: ACETAMINOPHEN
     Indication: Product used for unknown indication
     Dosage: 26 GTT DROPS, TID
     Route: 048
     Dates: start: 20200721
  7. CLAVULANIC ACID [Concomitant]
     Active Substance: CLAVULANIC ACID
     Indication: Product used for unknown indication
     Dosage: 500 MILLIGRAM, 3X/DAY:TID
     Route: 048
  8. AMBROXOL [Concomitant]
     Active Substance: AMBROXOL
     Indication: Product used for unknown indication
     Dosage: 5 MILLILITER, 3X/DAY:TID
     Route: 048
     Dates: start: 20200721
  9. ATROVENT [Concomitant]
     Active Substance: IPRATROPIUM BROMIDE
     Indication: Product used for unknown indication
     Dosage: 500 MILLIGRAM, 3X/DAY:TID
     Dates: start: 20200723
  10. FERROUS FUMARATE [Concomitant]
     Active Substance: FERROUS FUMARATE
     Indication: Product used for unknown indication
     Dosage: 8 MILLILITER
     Route: 048
     Dates: start: 202012, end: 20210118

REACTIONS (8)
  - Pneumonia [Fatal]
  - Malnutrition [Fatal]
  - Illness [Recovered/Resolved]
  - Body temperature abnormal [Recovered/Resolved]
  - Productive cough [Not Recovered/Not Resolved]
  - Dysphagia [Not Recovered/Not Resolved]
  - Therapy interrupted [Not Recovered/Not Resolved]
  - Product dose omission issue [Unknown]

NARRATIVE: CASE EVENT DATE: 20200110
